FAERS Safety Report 6413538-2 (Version None)
Quarter: 2009Q4

REPORT INFORMATION
  Report Type: 
  Country: None (occurrence: None)
  Receive Date: 20091020
  Receipt Date: 20091005
  Transmission Date: 20100525
  Serious: Yes (Disabling)
  Sender: FDA-Public Use
  Company Number: PHHY2009FR42899

PATIENT
  Age: 79 Year
  Sex: Female

DRUGS (6)
  1. VISUDYNE [Suspect]
     Indication: MACULAR DEGENERATION
     Dates: start: 20090401, end: 20090401
  2. VISUDYNE [Suspect]
     Indication: MACULAR DEGENERATION
     Dates: start: 20090803, end: 20090803
  3. ODRIK [Concomitant]
  4. DIOSMINE [Concomitant]
  5. AZOPT [Concomitant]
  6. XALATAN [Concomitant]

REACTIONS (1)
  - AMNESIA [None]
